FAERS Safety Report 12245764 (Version 1)
Quarter: 2016Q2

REPORT INFORMATION
  Report Type: Spontaneous
  Country: CH (occurrence: CH)
  Receive Date: 20160407
  Receipt Date: 20160407
  Transmission Date: 20160815
  Serious: Yes (Hospitalization)
  Sender: FDA-Public Use
  Company Number: CH-IMPAX LABORATORIES, INC-2016-IPXL-00346

PATIENT
  Age: 83 Year
  Sex: Female
  Weight: 56 kg

DRUGS (1)
  1. DIGOXIN. [Suspect]
     Active Substance: DIGOXIN
     Indication: DYSPNOEA
     Dosage: 0.25 MG/DAY, 5 /WEEK
     Route: 065

REACTIONS (4)
  - Atrioventricular block [Recovered/Resolved]
  - Adams-Stokes syndrome [Not Recovered/Not Resolved]
  - Toxicity to various agents [Recovered/Resolved]
  - Ventricular tachycardia [Recovered/Resolved]
